FAERS Safety Report 10102479 (Version 1)
Quarter: 2014Q2

REPORT INFORMATION
  Report Type: Spontaneous
  Country: SA (occurrence: SA)
  Receive Date: 20140424
  Receipt Date: 20140424
  Transmission Date: 20141212
  Serious: Yes (Hospitalization, Other)
  Sender: FDA-Public Use
  Company Number: SA-WATSON-2014-07858

PATIENT
  Age: 67 Year
  Sex: Male

DRUGS (3)
  1. CIPROFLOXACIN HYDROCHLORIDE (UNKNOWN) [Suspect]
     Indication: WOUND INFECTION
     Dosage: UNK
     Route: 065
  2. VANCOMYCIN (UNKNOWN) [Suspect]
     Indication: WOUND INFECTION
     Dosage: UNK
     Route: 065
  3. IMIPENEM [Suspect]
     Indication: WOUND INFECTION
     Dosage: UNK
     Route: 065
     Dates: start: 20110620

REACTIONS (1)
  - Clostridium difficile colitis [Recovered/Resolved]
